FAERS Safety Report 9516346 (Version 1)
Quarter: 2013Q1

REPORT INFORMATION
  Report Type: Spontaneous
  Country: US (occurrence: None)
  Receive Date: 20130326
  Receipt Date: 20130326
  Transmission Date: 20140127
  Serious: Yes (Hospitalization)
  Sender: FDA-Public Use
  Company Number: 2013-0478

PATIENT
  Age: 63 Year
  Sex: Male

DRUGS (1)
  1. KYPROLIS (CARFILZOMIB) [Suspect]
     Indication: PLASMA CELL MYELOMA
     Route: 042
     Dates: start: 20130219

REACTIONS (3)
  - Acute respiratory failure [None]
  - Hypotension [None]
  - Clostridium difficile infection [None]
